FAERS Safety Report 13456559 (Version 2)
Quarter: 2017Q2

REPORT INFORMATION
  Report Type: Spontaneous
  Country: AZ (occurrence: AZ)
  Receive Date: 20170419
  Receipt Date: 20170428
  Transmission Date: 20170830
  Serious: Yes (Hospitalization, Other)
  Sender: FDA-Public Use
  Company Number: AZ-NOVOPROD-540526

PATIENT
  Age: 38 Year
  Sex: Male
  Weight: 85 kg

DRUGS (6)
  1. NOVORAPID [Suspect]
     Active Substance: INSULIN ASPART
     Indication: TYPE 2 DIABETES MELLITUS
     Dosage: UNK
     Route: 058
     Dates: end: 2016
  2. ROVASTAT [Concomitant]
     Indication: HYPERTRIGLYCERIDAEMIA
     Dosage: UNK
     Route: 048
  3. LEVEMIR [Suspect]
     Active Substance: INSULIN DETEMIR
     Dosage: UNK
     Route: 058
     Dates: start: 201612, end: 201702
  4. NOVORAPID [Suspect]
     Active Substance: INSULIN ASPART
     Dosage: 86 U
     Route: 058
     Dates: start: 201612
  5. LEVEMIR [Suspect]
     Active Substance: INSULIN DETEMIR
     Indication: TYPE 2 DIABETES MELLITUS
     Dosage: UNK
     Route: 058
     Dates: start: 2015, end: 2016
  6. ASPIRIN CARDIO [Concomitant]
     Active Substance: ASPIRIN
     Indication: CARDIOVASCULAR EVENT PROPHYLAXIS
     Dosage: UNK
     Route: 048

REACTIONS (4)
  - Pleurisy [Unknown]
  - Pancreatitis necrotising [Recovered/Resolved]
  - Splenic vein thrombosis [Unknown]
  - Hepatosplenomegaly [Unknown]

NARRATIVE: CASE EVENT DATE: 20170101
